FAERS Safety Report 5461093-6 (Version None)
Quarter: 2007Q3

REPORT INFORMATION
  Report Type: 
  Country: None (occurrence: None)
  Receive Date: 20070920
  Receipt Date: 20070917
  Transmission Date: 20080115
  Serious: Yes (Other)
  Sender: FDA-Public Use
  Company Number: DE-RB-008015-07

PATIENT
  Age: 27 Year
  Sex: Female

DRUGS (2)
  1. SUBOXONE [Suspect]
     Route: 060
     Dates: start: 20070817, end: 20070826
  2. SUBOXONE [Suspect]
     Route: 060
     Dates: start: 20070827, end: 20070905

REACTIONS (2)
  - ARRHYTHMIA [None]
  - TACHYCARDIA [None]
